FAERS Safety Report 5305120-5 (Version None)
Quarter: 2007Q2

REPORT INFORMATION
  Report Type: 
  Country: None (occurrence: None)
  Receive Date: 20070417
  Receipt Date: 20070407
  Transmission Date: 20071010
  Serious: Yes (Hospitalization)
  Sender: FDA-Public Use
  Company Number: 430028K07USA

PATIENT
  Age: 46 Year
  Sex: Female

DRUGS (3)
  1. NOVANTRONE [Suspect]
     Indication: MULTIPLE SCLEROSIS
     Dates: start: 20040201, end: 20040201
  2. NOVANTRONE [Suspect]
     Indication: MULTIPLE SCLEROSIS
     Dates: start: 20061001, end: 20061001
  3. REBIF [Suspect]
     Indication: MULTIPLE SCLEROSIS
     Dosage: 44 MCG, 3 IN 1 WEEKS, SUBCUTANEOUS
     Route: 058
     Dates: start: 20051031, end: 20060101

REACTIONS (2)
  - MALAISE [None]
  - VOMITING [None]
